FAERS Safety Report 6706427-7 (Version None)
Quarter: 2010Q2

REPORT INFORMATION
  Report Type: 
  Country: None (occurrence: None)
  Receive Date: 20100503
  Receipt Date: 20100423
  Transmission Date: 20101027
  Serious: Yes (Hospitalization, Other)
  Sender: FDA-Public Use
  Company Number: PHHO2010JP06325

PATIENT
  Sex: Female
  Weight: 116 kg

DRUGS (6)
  1. VOLTAREN [Suspect]
     Indication: RHEUMATOID ARTHRITIS
     Dosage: 3X/DAY
     Route: 048
     Dates: start: 20090407, end: 20100401
  2. METHOTREXATE [Suspect]
     Indication: RHEUMATOID ARTHRITIS
     Dosage: WEEK
     Route: 048
     Dates: start: 20090817, end: 20100324
  3. PREDNISOLONE [Suspect]
     Indication: RHEUMATOID ARTHRITIS
     Dosage: DAY
     Route: 048
     Dates: start: 20090917, end: 20100401
  4. MUCOSTA [Concomitant]
  5. FOLIC ACID [Concomitant]
  6. ISCOTIN [Concomitant]

REACTIONS (5)
  - ABDOMINAL PAIN [None]
  - ABDOMINAL REBOUND TENDERNESS [None]
  - ACUTE ABDOMEN [None]
  - PERITONEAL DISORDER [None]
  - PYREXIA [None]
